FAERS Safety Report 19294101 (Version 1)
Quarter: 2021Q2

REPORT INFORMATION
  Report Type: Spontaneous
  Country: US (occurrence: US)
  Receive Date: 20210524
  Receipt Date: 20210524
  Transmission Date: 20210717
  Serious: Yes (Life-Threatening, Hospitalization, Disabling)
  Sender: FDA-Public Use
  Company Number: None

PATIENT
  Age: 31 Year
  Sex: Male
  Weight: 76.5 kg

DRUGS (1)
  1. FLUANXOL [Suspect]
     Active Substance: FLUPENTIXOL
     Indication: DEPRESSION

REACTIONS (10)
  - Depression [None]
  - Tremor [None]
  - Chest pain [None]
  - Urinary retention [None]
  - Anxiety [None]
  - Blood pressure increased [None]
  - Heart rate irregular [None]
  - Fall [None]
  - Cognitive disorder [None]
  - Restless legs syndrome [None]

NARRATIVE: CASE EVENT DATE: 20210520
